FAERS Safety Report 13666592 (Version 1)
Quarter: 2017Q2

REPORT INFORMATION
  Report Type: Spontaneous
  Country: US (occurrence: US)
  Receive Date: 20170619
  Receipt Date: 20170619
  Transmission Date: 20170830
  Serious: Yes (Hospitalization)
  Sender: FDA-Public Use
  Company Number: US-ROCHE-763763

PATIENT
  Age: 70 Year
  Sex: Female
  Weight: 76 kg

DRUGS (9)
  1. EXEMESTANE. [Suspect]
     Active Substance: EXEMESTANE
     Indication: BREAST CANCER
     Dosage: DATE OF LAST DOSE: 23 APRIL 2009
     Route: 048
     Dates: start: 20080423, end: 20090128
  2. SIMVASTATIN. [Concomitant]
     Active Substance: SIMVASTATIN
     Indication: HYPERLIPIDAEMIA
     Route: 048
  3. XELODA [Suspect]
     Active Substance: CAPECITABINE
     Indication: BREAST CANCER
     Route: 048
     Dates: start: 20090521, end: 20090611
  4. PEPCID [Concomitant]
     Active Substance: FAMOTIDINE
     Dosage: DOSE: 20 MG AS NEEDED
     Route: 048
  5. NORVASC [Concomitant]
     Active Substance: AMLODIPINE BESYLATE
     Indication: HYPERTENSION
     Route: 048
  6. CP-751, 871 [Suspect]
     Active Substance: FIGITUMUMAB
     Indication: BREAST CANCER
     Route: 065
     Dates: start: 20080423, end: 20090423
  7. AMLODIPINE [Concomitant]
     Active Substance: AMLODIPINE BESYLATE
     Indication: HYPERTENSION
     Route: 048
  8. FASLODEX [Suspect]
     Active Substance: FULVESTRANT
     Indication: BREAST CANCER
     Dosage: DATE OF LAST DOSE: 23 APRIL 2009
     Route: 042
     Dates: start: 20080423, end: 20090520
  9. HYDROCHLOROTHIAZIDE. [Concomitant]
     Active Substance: HYDROCHLOROTHIAZIDE
     Indication: HYPERTENSION
     Route: 048

REACTIONS (1)
  - Dehydration [Recovered/Resolved]

NARRATIVE: CASE EVENT DATE: 20090528
